FAERS Safety Report 11492416 (Version 1)
Quarter: 2015Q3

REPORT INFORMATION
  Report Type: Spontaneous
  Country: JP (occurrence: JP)
  Receive Date: 20150910
  Receipt Date: 20150910
  Transmission Date: 20151125
  Serious: Yes (Hospitalization)
  Sender: FDA-Public Use
  Company Number: JP-CELGENE-087-21880-13125320

PATIENT
  Age: 61 Year
  Sex: Male
  Weight: 60.9 kg

DRUGS (39)
  1. LENADEX [Suspect]
     Active Substance: DEXAMETHASONE ACETATE
     Indication: PLASMA CELL MYELOMA
     Dosage: 40 MILLIGRAM
     Route: 048
     Dates: start: 20120329
  2. CEFEPIME [Concomitant]
     Active Substance: CEFEPIME HYDROCHLORIDE
     Indication: ADVERSE EVENT
     Route: 065
     Dates: start: 20120331, end: 20120402
  3. SOLDEM 3A [Concomitant]
     Active Substance: CARBOHYDRATES\POTASSIUM CHLORIDE\SODIUM CHLORIDE\SODIUM LACTATE
     Indication: ADVERSE EVENT
     Route: 065
     Dates: start: 20131226, end: 20131228
  4. LEVOFLOXACIN. [Suspect]
     Active Substance: LEVOFLOXACIN
     Indication: ADVERSE EVENT
     Route: 065
     Dates: start: 20121225, end: 20121226
  5. BENPROPERINE [Suspect]
     Active Substance: BENPROPERINE
     Indication: ADVERSE EVENT
     Route: 065
     Dates: start: 20131222, end: 20131224
  6. NIFEDIPINE. [Concomitant]
     Active Substance: NIFEDIPINE
     Indication: PRODUCT USED FOR UNKNOWN INDICATION
     Route: 065
     Dates: start: 20080704, end: 20131224
  7. MS HOT POULTICE [Concomitant]
     Indication: PRODUCT USED FOR UNKNOWN INDICATION
     Route: 065
     Dates: start: 20090210
  8. POVIDONE-IODINE. [Concomitant]
     Active Substance: POVIDONE-IODINE
     Indication: PRODUCT USED FOR UNKNOWN INDICATION
     Route: 065
     Dates: start: 20080901, end: 20131224
  9. ACETAMINOPHEN. [Concomitant]
     Active Substance: ACETAMINOPHEN
     Indication: ADVERSE EVENT
     Route: 065
     Dates: start: 20120401, end: 20120401
  10. INFLUENZA HA VACCINE [Concomitant]
     Active Substance: INFLUENZA VIRUS VACCINE
     Route: 065
     Dates: start: 20141120, end: 20141120
  11. L-CARBOCISTEINE [Concomitant]
     Active Substance: CARBOCYSTEINE
     Indication: ADVERSE EVENT
     Route: 065
     Dates: start: 20121225, end: 20121226
  12. SOLITA [Concomitant]
     Indication: ADVERSE EVENT
     Route: 065
     Dates: start: 20131224, end: 20131228
  13. AMBROXOL [Suspect]
     Active Substance: AMBROXOL
     Indication: ADVERSE EVENT
     Route: 065
     Dates: start: 20130626, end: 20130707
  14. POVIDONE-IODINE. [Concomitant]
     Active Substance: POVIDONE-IODINE
     Route: 065
     Dates: start: 20140107
  15. XYZAL [Concomitant]
     Active Substance: LEVOCETIRIZINE DIHYDROCHLORIDE
     Indication: ADVERSE EVENT
     Route: 065
     Dates: start: 20140811, end: 20140812
  16. LEVOFLOXACIN. [Suspect]
     Active Substance: LEVOFLOXACIN
     Route: 065
     Dates: start: 20131222, end: 20131224
  17. CANDESARTAN CILEXETIL. [Concomitant]
     Active Substance: CANDESARTAN CILEXETIL
     Route: 065
     Dates: start: 20121026, end: 20131224
  18. MAGNESIUM OXIDE. [Concomitant]
     Active Substance: MAGNESIUM OXIDE
     Indication: PRODUCT USED FOR UNKNOWN INDICATION
     Route: 065
     Dates: start: 20080701, end: 20120830
  19. INFLUENZA HA VACCINE [Concomitant]
     Active Substance: INFLUENZA VIRUS VACCINE
     Route: 065
     Dates: start: 20131111, end: 20131111
  20. WARFARIN POTASSIUM [Concomitant]
     Active Substance: WARFARIN POTASSIUM
     Route: 065
     Dates: start: 20140107
  21. ADOAIR AEROSOL [Concomitant]
     Indication: ADVERSE EVENT
     Route: 065
     Dates: start: 20130612, end: 20130626
  22. ASPIRIN. [Concomitant]
     Active Substance: ASPIRIN
     Indication: PRODUCT USED FOR UNKNOWN INDICATION
     Route: 065
     Dates: start: 20120329, end: 20130704
  23. ACETAMINOPHEN. [Concomitant]
     Active Substance: ACETAMINOPHEN
     Route: 065
     Dates: start: 20121225, end: 20121229
  24. INFLUENZA HA VACCINE [Concomitant]
     Active Substance: INFLUENZA VIRUS VACCINE
     Indication: PRODUCT USED FOR UNKNOWN INDICATION
     Route: 065
     Dates: start: 20121108, end: 20121108
  25. WARFARIN POTASSIUM [Concomitant]
     Active Substance: WARFARIN POTASSIUM
     Indication: ADVERSE EVENT
     Route: 065
     Dates: start: 20130425, end: 20131224
  26. IBUPROFEN. [Suspect]
     Active Substance: IBUPROFEN
     Indication: ADVERSE EVENT
     Route: 048
     Dates: start: 20131222, end: 20131224
  27. CANDESARTAN CILEXETIL. [Concomitant]
     Active Substance: CANDESARTAN CILEXETIL
     Indication: PRODUCT USED FOR UNKNOWN INDICATION
     Route: 065
     Dates: start: 20080718, end: 20120816
  28. NIFEDIPINE. [Concomitant]
     Active Substance: NIFEDIPINE
     Route: 065
     Dates: start: 20140107
  29. TRANEXAMIC ACID. [Concomitant]
     Active Substance: TRANEXAMIC ACID
     Indication: ADVERSE EVENT
     Route: 065
     Dates: start: 20121225, end: 20121229
  30. PROCATEROL HYDROCHLORIDE HYDRATE [Concomitant]
     Indication: ADVERSE EVENT
     Route: 065
     Dates: start: 20130612, end: 20130615
  31. LEVOCETIRIZINE HYDROCHLORIDE [Concomitant]
     Active Substance: LEVOCETIRIZINE HYDROCHLORIDE
     Indication: ADVERSE EVENT
     Route: 065
     Dates: start: 20130626, end: 20130707
  32. AZILSARTAN [Concomitant]
     Active Substance: AZILSARTAN KAMEDOXOMIL
     Indication: PRODUCT USED FOR UNKNOWN INDICATION
     Route: 065
     Dates: start: 20140213
  33. REVLIMID [Suspect]
     Active Substance: LENALIDOMIDE
     Indication: PLASMA CELL MYELOMA
     Dosage: 25 MILLIGRAM
     Route: 048
     Dates: start: 20120329
  34. AMBROXOL [Suspect]
     Active Substance: AMBROXOL
     Route: 065
     Dates: start: 20131222, end: 20131224
  35. PA TABLETS [Suspect]
     Active Substance: UNSPECIFIED INGREDIENT
     Indication: ADVERSE EVENT
     Route: 048
     Dates: start: 20131222, end: 20131224
  36. CANDESARTAN CILEXETIL. [Concomitant]
     Active Substance: CANDESARTAN CILEXETIL
     Route: 065
     Dates: start: 20140107
  37. CEFCAPENE PIVOXIL HYDROCHLORIDE HYDRATE [Concomitant]
     Active Substance: CEFCAPENE PIVOXIL HYDROCHLORIDE HYDRATE
     Indication: ADVERSE EVENT
     Route: 065
     Dates: start: 20120402, end: 20120405
  38. CEFCAPENE PIVOXIL HYDROCHLORIDE HYDRATE [Concomitant]
     Active Substance: CEFCAPENE PIVOXIL HYDROCHLORIDE HYDRATE
     Route: 065
     Dates: start: 20140813, end: 20140818
  39. SENNOSIDE [Concomitant]
     Active Substance: SENNOSIDES
     Indication: PRODUCT USED FOR UNKNOWN INDICATION
     Route: 065
     Dates: start: 20120213, end: 20120830

REACTIONS (1)
  - Rhabdomyolysis [Recovered/Resolved]

NARRATIVE: CASE EVENT DATE: 20131224
